FAERS Safety Report 12388104 (Version 1)
Quarter: 2016Q2

REPORT INFORMATION
  Report Type: Spontaneous
  Country: MA (occurrence: MA)
  Receive Date: 20160520
  Receipt Date: 20160520
  Transmission Date: 20160815
  Serious: Yes (Death, Other)
  Sender: FDA-Public Use
  Company Number: MA-ACCORD-040748

PATIENT
  Age: 54 Year
  Sex: Male

DRUGS (4)
  1. DOCETAXEL. [Suspect]
     Active Substance: DOCETAXEL
     Indication: LEIOMYOSARCOMA
     Dosage: RECEIVED 05 CYCLES
  2. CARBOPLATIN. [Suspect]
     Active Substance: CARBOPLATIN
     Indication: LEIOMYOSARCOMA
     Dosage: RECEIVED 04 CYCLES
  3. GEMCITABINE/GEMCITABINE HYDROCHLORIDE [Suspect]
     Active Substance: GEMCITABINE\GEMCITABINE HYDROCHLORIDE
     Indication: LEIOMYOSARCOMA
     Dosage: RECEIVED 05 CYCLES
  4. PACLITAXEL/PACLITAXEL LIPOSOME [Suspect]
     Active Substance: PACLITAXEL
     Indication: LEIOMYOSARCOMA
     Dosage: RECEIVED 04 CYCLES

REACTIONS (3)
  - Septic shock [Fatal]
  - Drug ineffective [Unknown]
  - Meningitis bacterial [Fatal]
